FAERS Safety Report 26027927 (Version 2)
Quarter: 2025Q4

REPORT INFORMATION
  Report Type: Report from Study
  Country: US (occurrence: US)
  Receive Date: 20251111
  Receipt Date: 20251121
  Transmission Date: 20260117
  Serious: Yes (Other)
  Sender: ACADIA PHARMACEUTICALS
  Company Number: US-ACADIA PHARMACEUTICALS INC.-ACA-2025-PIM-012035

PATIENT
  Sex: Male

DRUGS (8)
  1. NUPLAZID [Suspect]
     Active Substance: PIMAVANSERIN TARTRATE
     Indication: Parkinson^s disease psychosis
     Dosage: 10 MILLIGRAM, QD
     Route: 048
     Dates: start: 20250924, end: 20250930
  2. DONEPEZIL [Concomitant]
     Active Substance: DONEPEZIL
  3. SINEMET [Concomitant]
     Active Substance: CARBIDOPA\LEVODOPA
  4. FLUDROCORTISONE [Concomitant]
     Active Substance: FLUDROCORTISONE
  5. MIDODRINE [Concomitant]
     Active Substance: MIDODRINE
  6. ALLOPURINOL [Concomitant]
     Active Substance: ALLOPURINOL
  7. METOPROLOL [Concomitant]
     Active Substance: METOPROLOL
  8. APIXABAN [Concomitant]
     Active Substance: APIXABAN

REACTIONS (3)
  - Hallucination [Recovering/Resolving]
  - Confusional state [Unknown]
  - Underdose [Unknown]
